FAERS Safety Report 12893525 (Version 1)
Quarter: 2016Q4

REPORT INFORMATION
  Report Type: Spontaneous
  Country: US (occurrence: US)
  Receive Date: 20161027
  Receipt Date: 20161027
  Transmission Date: 20170207
  Serious: Yes (Life-Threatening, Hospitalization, Other)
  Sender: FDA-Public Use
  Company Number: None

PATIENT

DRUGS (4)
  1. DEPO-MEDROL [Concomitant]
     Active Substance: METHYLPREDNISOLONE ACETATE
  2. MARCAINE [Concomitant]
     Active Substance: BUPIVACAINE HYDROCHLORIDE
  3. LIDOCAINE. [Suspect]
     Active Substance: LIDOCAINE
     Indication: ARTHRALGIA
     Dosage: ?          OTHER FREQUENCY:ONCE;?
     Route: 014
     Dates: start: 20161017, end: 20161017
  4. LIDOCAINE. [Suspect]
     Active Substance: LIDOCAINE
     Indication: ARTHRALGIA
     Dosage: ?          OTHER FREQUENCY:ONCE;?
     Route: 014
     Dates: start: 20161017, end: 20161017

REACTIONS (4)
  - Injection site joint swelling [None]
  - Staphylococcal infection [None]
  - Injection site joint warmth [None]
  - Injection site joint pain [None]

NARRATIVE: CASE EVENT DATE: 20161017
